FAERS Safety Report 6389986-6 (Version None)
Quarter: 2009Q4

REPORT INFORMATION
  Report Type: 
  Country: None (occurrence: None)
  Receive Date: 20091003
  Receipt Date: 20090918
  Transmission Date: 20100525
  Serious: Yes (Death)
  Sender: FDA-Public Use
  Company Number: 2009S1000405

PATIENT
  Age: 54 Year
  Sex: Male

DRUGS (1)
  1. CUBICIN [Suspect]

REACTIONS (3)
  - BLOOD CULTURE POSITIVE [None]
  - MINIMUM INHIBITORY CONCENTRATION [None]
  - STAPHYLOCOCCAL INFECTION [None]
